FAERS Safety Report 25349523 (Version 3)
Quarter: 2025Q3

REPORT INFORMATION
  Report Type: Report from Study
  Country: US (occurrence: US)
  Receive Date: 20250522
  Receipt Date: 20250703
  Transmission Date: 20251020
  Serious: Yes (Hospitalization)
  Sender: ABBVIE
  Company Number: US-ABBVIE-6287319

PATIENT
  Age: 62 Year
  Sex: Female

DRUGS (2)
  1. CREON [Suspect]
     Active Substance: PANCRELIPASE AMYLASE\PANCRELIPASE LIPASE\PANCRELIPASE PROTEASE
     Indication: Pancreatic failure
     Route: 048
     Dates: start: 20250307
  2. CREON [Suspect]
     Active Substance: PANCRELIPASE AMYLASE\PANCRELIPASE LIPASE\PANCRELIPASE PROTEASE
     Indication: Pancreatic failure
     Route: 048
     Dates: start: 20250509

REACTIONS (5)
  - Anaemia [Not Recovered/Not Resolved]
  - Peripheral swelling [Unknown]
  - Illness [Unknown]
  - Blister rupture [Unknown]
  - Gait inability [Unknown]

NARRATIVE: CASE EVENT DATE: 20250101
